FAERS Safety Report 7402825-7 (Version None)
Quarter: 2011Q2

REPORT INFORMATION
  Report Type: 
  Country: None (occurrence: None)
  Receive Date: 20110408
  Receipt Date: 20110310
  Transmission Date: 20111010
  Serious: No
  Sender: FDA-Public Use
  Company Number: JP-ROCHE-769908

PATIENT
  Age: 8 Year

DRUGS (4)
  1. TAMIFLU [Suspect]
     Dosage: DOSAGE IS UNCERTAIN
     Route: 048
     Dates: start: 20110308, end: 20110308
  2. TAMIFLU [Suspect]
     Dosage: DOSAGE IS UNCERTAIN
     Route: 048
     Dates: start: 20110310
  3. TAMIFLU [Suspect]
     Dosage: DOSAGE IS UNCERTAIN
     Route: 048
     Dates: start: 20110307, end: 20110307
  4. TAMIFLU [Suspect]
     Dosage: DOSAGE IS UNCERTAIN
     Route: 048
     Dates: start: 20110309, end: 20110309

REACTIONS (2)
  - VISION BLURRED [None]
  - OVERDOSE [None]
